FAERS Safety Report 16272230 (Version 1)
Quarter: 2019Q2

REPORT INFORMATION
  Report Type: Spontaneous
  Country: GB (occurrence: GB)
  Receive Date: 20190503
  Receipt Date: 20190503
  Transmission Date: 20190711
  Serious: Yes (Disabling, Other)
  Sender: FDA-Public Use
  Company Number: GB-TEVA-2019-GB-1044463

PATIENT
  Age: 40 Year
  Sex: Female
  Weight: 57.15 kg

DRUGS (5)
  1. DIAZEPAM. [Concomitant]
     Active Substance: DIAZEPAM
  2. TRAMADOL. [Concomitant]
     Active Substance: TRAMADOL
  3. NAPROXEN. [Concomitant]
     Active Substance: NAPROXEN
  4. CODEINE PHOSPHATE [Concomitant]
     Active Substance: CODEINE PHOSPHATE
  5. GABAPENTIN. [Suspect]
     Active Substance: GABAPENTIN
     Indication: BACK PAIN
     Route: 048
     Dates: start: 20190325, end: 20190329

REACTIONS (3)
  - Muscle spasms [Unknown]
  - Restless legs syndrome [Unknown]
  - Pain [Unknown]

NARRATIVE: CASE EVENT DATE: 20190325
